FAERS Safety Report 19439415 (Version 1)
Quarter: 2021Q2

REPORT INFORMATION
  Report Type: Report from Study
  Country: ES (occurrence: ES)
  Receive Date: 20210618
  Receipt Date: 20210618
  Transmission Date: 20210717
  Serious: Yes (Life-Threatening, Other)
  Sender: FDA-Public Use
  Company Number: ES-AMGEN-ESPNI2020103713

PATIENT
  Age: 12 Month
  Sex: Male
  Weight: 4.4 kg

DRUGS (4)
  1. FLUOXETINE [Concomitant]
     Active Substance: FLUOXETINE HYDROCHLORIDE
     Indication: FOETAL EXPOSURE DURING PREGNANCY
     Dosage: 20 MILLIGRAM
     Route: 064
  2. CETRIZINE [Concomitant]
     Active Substance: CETIRIZINE HYDROCHLORIDE
     Indication: FOETAL EXPOSURE DURING PREGNANCY
     Dosage: 10 MILLIGRAM
     Route: 064
  3. BUDESONIDE. [Concomitant]
     Active Substance: BUDESONIDE
     Indication: FOETAL EXPOSURE DURING PREGNANCY
     Dosage: 200 MICROGRAM
     Route: 064
  4. ERENUMAB [Suspect]
     Active Substance: ERENUMAB
     Indication: FOETAL EXPOSURE DURING PREGNANCY
     Dosage: UNK
     Route: 064

REACTIONS (6)
  - Foetal exposure during pregnancy [Unknown]
  - Hypoxic-ischaemic encephalopathy [Not Recovered/Not Resolved]
  - Loss of consciousness [Unknown]
  - Asphyxia [Unknown]
  - Ischaemic stroke [Unknown]
  - Foetal malpresentation [Unknown]

NARRATIVE: CASE EVENT DATE: 20200612
